FAERS Safety Report 7918422-0 (Version None)
Quarter: 2011Q4

REPORT INFORMATION
  Report Type: 
  Country: None (occurrence: None)
  Receive Date: 20111116
  Receipt Date: 20111107
  Transmission Date: 20120403
  Serious: Yes (Hospitalization)
  Sender: FDA-Public Use
  Company Number: US-ROCHE-1011278

PATIENT

DRUGS (4)
  1. HERCEPTIN [Suspect]
     Indication: PRODUCT USED FOR UNKNOWN INDICATION
     Dosage: OVER 90 MINUTES , WEEK 1
     Route: 042
     Dates: start: 20080623
  2. PACLITAXEL [Suspect]
     Indication: PRODUCT USED FOR UNKNOWN INDICATION
     Dosage: OVER 1 HOUR FOR 1 WEEK
     Route: 042
     Dates: start: 20080623
  3. LAPATINIB [Suspect]
     Indication: PRODUCT USED FOR UNKNOWN INDICATION
     Route: 048
     Dates: start: 20080623
  4. HERCEPTIN [Suspect]
     Dosage: OVER 30 MINUTES FOR 15 WEEKS
     Route: 042

REACTIONS (1)
  - HAEMATURIA [None]
